FAERS Safety Report 7989304-3 (Version None)
Quarter: 2011Q4

REPORT INFORMATION
  Report Type: 
  Country: None (occurrence: None)
  Receive Date: 20111219
  Receipt Date: 20111206
  Transmission Date: 20120403
  Serious: Yes (Other)
  Sender: FDA-Public Use
  Company Number: FR-JNJFOC-20111207155

PATIENT

DRUGS (47)
  1. DOXORUBICIN HCL [Suspect]
     Dosage: CYCLE 3
     Route: 042
  2. CYCLOPHOSPHAMIDE [Suspect]
     Dosage: CYCLE 4
     Route: 065
  3. CYCLOPHOSPHAMIDE [Suspect]
     Dosage: CYCLE 2
     Route: 065
  4. ELDISINE [Suspect]
     Indication: DIFFUSE LARGE B-CELL LYMPHOMA
     Dosage: CYCLE 4
     Route: 065
  5. IFOSFAMIDE [Suspect]
     Dosage: CYCLE 9
     Route: 065
  6. PREDNISONE [Suspect]
     Dosage: CYCLE 4
     Route: 065
  7. METHOTREXATE [Suspect]
     Indication: DIFFUSE LARGE B-CELL LYMPHOMA
     Dosage: CYCLE 6
     Route: 042
  8. ETOPOSIDE [Suspect]
     Indication: DIFFUSE LARGE B-CELL LYMPHOMA
     Dosage: CYCLE 7
     Route: 065
  9. IFOSFAMIDE [Suspect]
     Indication: DIFFUSE LARGE B-CELL LYMPHOMA
     Dosage: CYCLE 7
     Route: 065
  10. RITUXIMAB [Suspect]
     Dosage: CYCLE 10
     Route: 065
  11. PREDNISONE [Suspect]
     Dosage: CYCLE 1
     Route: 065
  12. PREDNISONE [Suspect]
     Dosage: CYCLE 2
     Route: 065
  13. ETOPOSIDE [Suspect]
     Dosage: CYCLE 9
     Route: 065
  14. RITUXIMAB [Suspect]
     Dosage: CYCLE 2
     Route: 065
  15. BLEOMYCIN SULFATE [Suspect]
     Indication: DIFFUSE LARGE B-CELL LYMPHOMA
     Dosage: CYCLE 4
     Route: 065
  16. BLEOMYCIN SULFATE [Suspect]
     Dosage: CYCLE 3
     Route: 065
  17. LEUCOVORIN CALCIUM [Suspect]
     Dosage: CYCLE 5
     Route: 065
  18. ETOPOSIDE [Suspect]
     Dosage: CYCLE 10
     Route: 065
  19. IFOSFAMIDE [Suspect]
     Dosage: CYCLE 8
     Route: 065
  20. RITUXIMAB [Suspect]
     Dosage: CYCLE 7
     Route: 065
  21. RITUXIMAB [Suspect]
     Dosage: CYCLE 3
     Route: 065
  22. CYCLOPHOSPHAMIDE [Suspect]
     Indication: DIFFUSE LARGE B-CELL LYMPHOMA
     Dosage: CYCLE 3
     Route: 065
  23. ELDISINE [Suspect]
     Dosage: CYCLE 2
     Route: 065
  24. BLEOMYCIN SULFATE [Suspect]
     Dosage: CYCLE 1
     Route: 065
  25. PREDNISONE [Suspect]
     Indication: DIFFUSE LARGE B-CELL LYMPHOMA
     Dosage: CYCLE 3
     Route: 065
  26. FILGRASTIM [Suspect]
     Indication: DIFFUSE LARGE B-CELL LYMPHOMA
     Route: 058
  27. METHOTREXATE [Suspect]
     Dosage: CYCLE 1
     Route: 037
  28. CYTARABINE [Suspect]
     Dosage: CYCLE 11
     Route: 058
  29. DOXORUBICIN HCL [Suspect]
     Indication: DIFFUSE LARGE B-CELL LYMPHOMA
     Dosage: CYCLE 4
     Route: 042
  30. CYCLOPHOSPHAMIDE [Suspect]
     Dosage: CYCLE 1
     Route: 065
  31. ELDISINE [Suspect]
     Dosage: CYCLE 1
     Route: 065
  32. METHOTREXATE [Suspect]
     Dosage: CYCLE 2
     Route: 037
  33. METHOTREXATE [Suspect]
     Dosage: CYCLE 2
     Route: 037
  34. LEUCOVORIN CALCIUM [Suspect]
     Indication: SALVAGE THERAPY
     Dosage: CYCLE 6
     Route: 065
  35. ETOPOSIDE [Suspect]
     Dosage: CYCLE 8
     Route: 065
  36. DOXORUBICIN HCL [Suspect]
     Dosage: CYCLE 2
     Route: 042
  37. RITUXIMAB [Suspect]
     Dosage: CYCLE 8
     Route: 065
  38. RITUXIMAB [Suspect]
     Dosage: CYCLE 1
     Route: 065
  39. ELDISINE [Suspect]
     Dosage: CYCLE 3
     Route: 065
  40. METHOTREXATE [Suspect]
     Indication: PROPHYLAXIS
     Dosage: CYCLE 3
     Route: 037
  41. METHOTREXATE [Suspect]
     Dosage: CYCLE 5
     Route: 042
  42. CYTARABINE [Suspect]
     Indication: DIFFUSE LARGE B-CELL LYMPHOMA
     Dosage: CYCLE 12
     Route: 058
  43. DOXORUBICIN HCL [Suspect]
     Dosage: CYCLE 1
     Route: 042
  44. RITUXIMAB [Suspect]
     Indication: DIFFUSE LARGE B-CELL LYMPHOMA
     Dosage: CYCLE 4
     Route: 065
  45. RITUXIMAB [Suspect]
     Dosage: CYCLE 9
     Route: 065
  46. BLEOMYCIN SULFATE [Suspect]
     Dosage: CYCLE 2
     Route: 065
  47. IFOSFAMIDE [Suspect]
     Dosage: CYCLE 10
     Route: 065

REACTIONS (1)
  - ADVERSE EVENT [None]
